FAERS Safety Report 22138516 (Version 1)
Quarter: 2023Q1

REPORT INFORMATION
  Report Type: Spontaneous
  Country: US (occurrence: US)
  Receive Date: 20230326
  Receipt Date: 20230326
  Transmission Date: 20230418
  Serious: No
  Sender: FDA-Public Use
  Company Number: US-SA-SAC20230323000666

PATIENT
  Age: 25 Year
  Sex: Male

DRUGS (2)
  1. ALPROLIX [Suspect]
     Active Substance: EFTRENONACOG ALFA
     Indication: Factor IX deficiency
     Dosage: 3865-4638 UNITS, FREQUENCY- ONCE A WEEK
     Route: 042
     Dates: start: 20220914
  2. ALPROLIX [Suspect]
     Active Substance: EFTRENONACOG ALFA
     Indication: Factor IX deficiency
     Dosage: 3865-4638 UNITS, FREQUENCY- ONCE A WEEK
     Route: 042
     Dates: start: 20220914

REACTIONS (2)
  - Foot fracture [Unknown]
  - Traumatic haemorrhage [Recovered/Resolved]
